FAERS Safety Report 10715591 (Version 3)
Quarter: 2015Q2

REPORT INFORMATION
  Report Type: Spontaneous
  Country: JP (occurrence: JP)
  Receive Date: 20150116
  Receipt Date: 20150406
  Transmission Date: 20150821
  Serious: Yes (Other)
  Sender: FDA-Public Use
  Company Number: JP-ROCHE-1522321

PATIENT
  Age: 22 Year
  Sex: Male
  Weight: 68 kg

DRUGS (6)
  1. TRANSAMIN [Concomitant]
     Active Substance: TRANEXAMIC ACID
     Indication: INFLUENZA
     Dosage: AMOUNT OF 1 ONCE ADMINISTRATION: 2 (UNIT UNCERTAINTY)
     Route: 048
     Dates: start: 20150108
  2. TAMIFLU [Suspect]
     Active Substance: OSELTAMIVIR PHOSPHATE
     Indication: INFLUENZA
     Route: 048
  3. TAMIFLU [Suspect]
     Active Substance: OSELTAMIVIR PHOSPHATE
     Route: 048
     Dates: start: 20150108, end: 20150108
  4. TAMIFLU [Suspect]
     Active Substance: OSELTAMIVIR PHOSPHATE
     Route: 048
     Dates: start: 20150109, end: 20150109
  5. SP [Concomitant]
     Indication: INFLUENZA
     Dosage: DOSAGE IS UNCERTAIN.
     Route: 049
     Dates: start: 20150108
  6. TOCLASE [Concomitant]
     Active Substance: PENTOXYVERINE
     Indication: INFLUENZA
     Dosage: AMOUNT OF 1 ONCE ADMINISTRATION: 1 (UNIT UNCERTAINTY)
     Route: 048
     Dates: start: 20150108

REACTIONS (2)
  - Abnormal behaviour [Unknown]
  - Dysaesthesia [Recovered/Resolved]

NARRATIVE: CASE EVENT DATE: 20150109
